FAERS Safety Report 9378262 (Version 1)
Quarter: 2013Q3

REPORT INFORMATION
  Report Type: Spontaneous
  Country: US (occurrence: US)
  Receive Date: 20130701
  Receipt Date: 20130701
  Transmission Date: 20140515
  Serious: No
  Sender: FDA-Public Use
  Company Number: US-PFIZER INC-2013190988

PATIENT
  Age: 65 Year
  Sex: Female
  Weight: 70.3 kg

DRUGS (1)
  1. LIPITOR [Suspect]
     Indication: BLOOD CHOLESTEROL INCREASED
     Dosage: 1 DF, DAILY
     Route: 048
     Dates: start: 1984, end: 1984

REACTIONS (1)
  - Influenza like illness [Recovered/Resolved]
